FAERS Safety Report 21376293 (Version 1)
Quarter: 2022Q3

REPORT INFORMATION
  Report Type: Report from Study
  Country: CN (occurrence: CN)
  Receive Date: 20220926
  Receipt Date: 20220926
  Transmission Date: 20221026
  Serious: Yes (Hospitalization, Other)
  Sender: FDA-Public Use
  Company Number: CN-BRISTOL-MYERS SQUIBB COMPANY-2022-111063

PATIENT
  Age: 52 Year
  Sex: Male

DRUGS (9)
  1. NIVOLUMAB [Suspect]
     Active Substance: NIVOLUMAB
     Indication: Non-small cell lung cancer
     Dosage: 21 DAYS
     Route: 065
     Dates: start: 20211130, end: 20220923
  2. NIVOLUMAB [Suspect]
     Active Substance: NIVOLUMAB
     Dosage: 21 DAYS
     Route: 065
     Dates: start: 20211206
  3. NIVOLUMAB [Suspect]
     Active Substance: NIVOLUMAB
     Dosage: 21 DAYS
     Route: 065
     Dates: start: 20211229
  4. NIVOLUMAB [Suspect]
     Active Substance: NIVOLUMAB
     Dosage: 21 DAYS
     Route: 065
     Dates: start: 20220119
  5. NIVOLUMAB [Suspect]
     Active Substance: NIVOLUMAB
     Route: 065
     Dates: start: 20220808
  6. NIVOLUMAB [Suspect]
     Active Substance: NIVOLUMAB
     Route: 065
     Dates: start: 20220829
  7. CATEQUENTINIB [Suspect]
     Active Substance: CATEQUENTINIB
     Indication: Non-small cell lung cancer
     Route: 048
     Dates: start: 20211130, end: 20220923
  8. CATEQUENTINIB [Suspect]
     Active Substance: CATEQUENTINIB
     Route: 048
     Dates: start: 20211206
  9. CATEQUENTINIB [Suspect]
     Active Substance: CATEQUENTINIB
     Route: 048
     Dates: start: 20211229

REACTIONS (1)
  - Bronchial fistula [Unknown]

NARRATIVE: CASE EVENT DATE: 20220923
